FAERS Safety Report 10167744 (Version 1)
Quarter: 2014Q2

REPORT INFORMATION
  Report Type: Spontaneous
  Country: BR (occurrence: BR)
  Receive Date: 20140512
  Receipt Date: 20140512
  Transmission Date: 20141212
  Serious: Yes (Other)
  Sender: FDA-Public Use
  Company Number: BR-VERTEX PHARMACEUTICALS INC-2014-002265

PATIENT
  Age: 48 Year
  Sex: Male

DRUGS (6)
  1. INCIVO [Suspect]
     Indication: HEPATITIS C
     Route: 048
     Dates: start: 20140421
  2. INCIVO [Suspect]
     Indication: CHRONIC HEPATITIS C
  3. INTERFERON [Concomitant]
     Indication: CHRONIC HEPATITIS C
     Dosage: UNK
     Route: 065
     Dates: start: 201403
  4. RIBAVIRINE [Concomitant]
     Indication: CHRONIC HEPATITIS C
     Dosage: DOSAGE FORM: UNSPECIFIED
     Route: 065
     Dates: start: 201403
  5. LOSARTAN [Concomitant]
     Indication: HYPERTENSION
     Dosage: UNK
     Route: 065
  6. HYDROCHLOROTHIAZIDE [Concomitant]
     Indication: HYPERTENSION
     Dosage: UNK
     Route: 065

REACTIONS (2)
  - Mental impairment [Not Recovered/Not Resolved]
  - Tremor [Not Recovered/Not Resolved]
